FAERS Safety Report 12407897 (Version 1)
Quarter: 2016Q2

REPORT INFORMATION
  Report Type: Report from Study
  Country: US (occurrence: US)
  Receive Date: 20160526
  Receipt Date: 20160526
  Transmission Date: 20160815
  Serious: Yes (Hospitalization)
  Sender: FDA-Public Use
  Company Number: US-THERATECHNOLOGIES, INC.-TH-2016-00045

PATIENT
  Age: 47 Year
  Sex: Female
  Weight: 84 kg

DRUGS (11)
  1. ADVIL/MOTRIN [Concomitant]
     Route: 048
  2. ZANTAC [Concomitant]
     Active Substance: RANITIDINE HYDROCHLORIDE
     Dosage: 300 MILLIGRAM
     Route: 048
  3. NORVIR [Concomitant]
     Active Substance: RITONAVIR
     Dosage: 200 MILLIGRAM
     Route: 048
  4. NO STUDY MEDICATION [Suspect]
     Active Substance: UNSPECIFIED INGREDIENT
     Indication: LIPODYSTROPHY ACQUIRED
  5. TESSALON [Concomitant]
     Active Substance: BENZONATATE
     Indication: COUGH
     Route: 048
  6. ASPIRIN. [Concomitant]
     Active Substance: ASPIRIN
     Dosage: 81 MILLIGRAM
     Route: 048
  7. LEVOTHYROXINE. [Concomitant]
     Active Substance: LEVOTHYROXINE
     Dosage: 50 MICROGRAM
     Route: 048
  8. ZOVIRAX [Concomitant]
     Active Substance: ACYCLOVIR
     Dosage: 1600 MILLIGRAM
     Route: 048
  9. REYATAZ [Concomitant]
     Active Substance: ATAZANAVIR SULFATE
     Dosage: 300 MILLIGRAM
     Route: 048
  10. MOBIC [Concomitant]
     Active Substance: MELOXICAM
     Dosage: 7.5 MILLIGRAM
     Route: 048
  11. TRUVADA [Concomitant]
     Active Substance: EMTRICITABINE\TENOFOVIR DISOPROXIL FUMARATE
     Dosage: 200-300 MILLIGRAM
     Route: 048

REACTIONS (1)
  - Viral infection [Recovered/Resolved]

NARRATIVE: CASE EVENT DATE: 20160304
